FAERS Safety Report 7659458-7 (Version None)
Quarter: 2011Q3

REPORT INFORMATION
  Report Type: 
  Country: None (occurrence: None)
  Receive Date: 20110805
  Receipt Date: 20110725
  Transmission Date: 20111222
  Serious: Yes (Hospitalization)
  Sender: FDA-Public Use
  Company Number: CA-JNJFOC-20110312273

PATIENT
  Sex: Male
  Weight: 89 kg

DRUGS (3)
  1. ASPIRIN [Concomitant]
  2. REMICADE [Suspect]
     Route: 042
     Dates: start: 20010101
  3. REMICADE [Suspect]
     Indication: RHEUMATOID ARTHRITIS
     Route: 042

REACTIONS (4)
  - DIARRHOEA [None]
  - VOMITING [None]
  - PYREXIA [None]
  - ENDOCARDITIS [None]
